FAERS Safety Report 9848595 (Version 1)
Quarter: 2014Q1

REPORT INFORMATION
  Report Type: Spontaneous
  Country: US (occurrence: None)
  Receive Date: 20140124
  Receipt Date: 20140124
  Transmission Date: 20141002
  Serious: Yes (Other)
  Sender: FDA-Public Use
  Company Number: None

PATIENT
  Age: 55 Year
  Sex: Male
  Weight: 86.18 kg

DRUGS (1)
  1. GABAPENTIN [Suspect]
     Indication: ANXIETY
     Dosage: TAKE 1 TAB QID PO
     Route: 048
     Dates: start: 20131126

REACTIONS (4)
  - Dysphagia [None]
  - Product coating issue [None]
  - Product substitution issue [None]
  - Drug ineffective [None]
